FAERS Safety Report 11132340 (Version 1)
Quarter: 2015Q2

REPORT INFORMATION
  Report Type: Spontaneous
  Country: CA (occurrence: CA)
  Receive Date: 20150522
  Receipt Date: 20150522
  Transmission Date: 20150821
  Serious: Yes (Other)
  Sender: FDA-Public Use
  Company Number: CA-TEVA-564914USA

PATIENT
  Age: 22 Year
  Sex: Female
  Weight: 52.5 kg

DRUGS (3)
  1. IRON [Concomitant]
     Active Substance: IRON
  2. VITAMIN D [Concomitant]
     Active Substance: CHOLECALCIFEROL
  3. PLAN B [Suspect]
     Active Substance: LEVONORGESTREL
     Indication: POST COITAL CONTRACEPTION
     Dosage: BOTH PILLS
     Dates: start: 20150512

REACTIONS (1)
  - Haemorrhage [Unknown]
